FAERS Safety Report 4765914-1 (Version None)
Quarter: 2005Q3

REPORT INFORMATION
  Report Type: 
  Country: None (occurrence: None)
  Receive Date: 20050908
  Receipt Date: 20050908
  Transmission Date: 20060218
  Serious: Yes (Other)
  Sender: FDA-Public Use
  Company Number: None

PATIENT
  Age: 68 Year
  Sex: Male
  Weight: 77.1115 kg

DRUGS (4)
  1. LUPRON [Suspect]
     Indication: PROSTATE CANCER
     Dosage: IM
     Route: 030
     Dates: start: 20040801, end: 20050701
  2. CASODEX [Suspect]
     Dosage: PO
     Route: 048
     Dates: start: 20040801, end: 20050701
  3. LIPITOR [Concomitant]
  4. ATENOLOL [Concomitant]

REACTIONS (2)
  - ARTHRITIS [None]
  - OEDEMA PERIPHERAL [None]
